FAERS Safety Report 16419599 (Version 1)
Quarter: 2019Q2

REPORT INFORMATION
  Report Type: Spontaneous
  Country: US (occurrence: US)
  Receive Date: 20190504
  Receipt Date: 20190504
  Transmission Date: 20190711
  Serious: No
  Sender: FDA-Public Use
  Company Number: None

PATIENT
  Age: 83 Year
  Sex: Male

DRUGS (1)
  1. ABIRATERONE 250MG TAB [Suspect]
     Active Substance: ABIRATERONE

REACTIONS (2)
  - Constipation [None]
  - Pain [None]

NARRATIVE: CASE EVENT DATE: 20190504
